FAERS Safety Report 10173346 (Version 1)
Quarter: 2014Q2

REPORT INFORMATION
  Report Type: Spontaneous
  Country: JP (occurrence: None)
  Receive Date: 20140513
  Receipt Date: 20140513
  Transmission Date: 20141212
  Serious: Yes (Other)
  Sender: FDA-Public Use
  Company Number: FK201401713

PATIENT
  Age: 63 Year
  Sex: Male

DRUGS (3)
  1. FLUOROURACIL (MANUFACTURER UNKNOWN) (FLUOROURACIL) (FLUOROURACIL) [Suspect]
     Indication: RECTAL CANCER
     Dosage: 1 CYCLE
  2. LEUCOVORIN CALCIUM [Suspect]
     Indication: RECTAL CANCER
     Dosage: 1 CYCLE
  3. OXALIPLATIN (MANUFACTURER UNKNOWN) (OXALIPLATIN) (OXALIPLATIN) [Suspect]
     Indication: RECTAL CANCER
     Dosage: 1 CYCLE

REACTIONS (6)
  - Postoperative wound infection [None]
  - Haemorrhage [None]
  - Leukopenia [None]
  - Thrombocytopenia [None]
  - Toxicity to various agents [None]
  - Anorectal infection [None]
